FAERS Safety Report 7330048-9 (Version None)
Quarter: 2011Q1

REPORT INFORMATION
  Report Type: 
  Country: None (occurrence: None)
  Receive Date: 20110303
  Receipt Date: 20110207
  Transmission Date: 20110831
  Serious: Yes (Other)
  Sender: FDA-Public Use
  Company Number: US-BAYER-201034356NA

PATIENT
  Sex: Female

DRUGS (4)
  1. YASMIN [Suspect]
     Indication: ACNE
     Route: 048
     Dates: start: 20070301, end: 20080901
  2. YAZ [Suspect]
     Indication: ACNE
     Route: 048
     Dates: start: 20070301, end: 20080901
  3. YAZ [Suspect]
     Route: 048
     Dates: start: 20041001, end: 20050901
  4. YASMIN [Suspect]
     Route: 048
     Dates: start: 20041001, end: 20050901

REACTIONS (5)
  - BILIARY DYSKINESIA [None]
  - CHOLECYSTITIS CHRONIC [None]
  - ABDOMINAL PAIN [None]
  - CONSTIPATION [None]
  - ABDOMINAL PAIN UPPER [None]
